FAERS Safety Report 7787334-8 (Version None)
Quarter: 2011Q3

REPORT INFORMATION
  Report Type: 
  Country: None (occurrence: None)
  Receive Date: 20110929
  Receipt Date: 20110922
  Transmission Date: 20111222
  Serious: Yes (Other)
  Sender: FDA-Public Use
  Company Number: PHHY2011GB84153

PATIENT
  Sex: Male

DRUGS (5)
  1. DOMPERIDONE [Concomitant]
     Dosage: 10 MG, TID
     Route: 048
  2. ONDANSETRON [Concomitant]
     Dosage: 4 MG, TID
  3. OMEPRAZOLE [Suspect]
     Dosage: 20 MG, QD
     Route: 048
  4. AMITRIPTYLINE HCL [Suspect]
     Dosage: 20 MG, QD
     Route: 048
  5. MIRTAZAPINE [Suspect]
     Dosage: 15 MG, QD
     Route: 048

REACTIONS (2)
  - BLOOD SODIUM DECREASED [None]
  - URINE SODIUM DECREASED [None]
